FAERS Safety Report 19468453 (Version 1)
Quarter: 2021Q2

REPORT INFORMATION
  Report Type: Spontaneous
  Country: NL (occurrence: NL)
  Receive Date: 20210628
  Receipt Date: 20210628
  Transmission Date: 20210717
  Serious: Yes (Other)
  Sender: FDA-Public Use
  Company Number: NL-MYLANLABS-2021M1038004

PATIENT
  Age: 25 Year
  Sex: Male
  Weight: 88 kg

DRUGS (5)
  1. ADALIMUMAB [Suspect]
     Active Substance: ADALIMUMAB
     Indication: PSORIATIC ARTHROPATHY
     Dosage: 1 DOSAGE FORM, Q2W
     Route: 058
     Dates: start: 202101, end: 20210323
  2. OMEPRAZOL                          /00661201/ [Concomitant]
     Active Substance: OMEPRAZOLE
     Dosage: GASTRO?RESISTANT CAPSULE, 20MG
  3. METHOTREXAAT                       /00113801/ [Concomitant]
     Active Substance: METHOTREXATE SODIUM
     Dosage: 15 MGR  SC
     Route: 058
  4. IBUPROFEN                          /00109205/ [Concomitant]
     Active Substance: IBUPROFEN
     Dosage: 800 MILLIGRAM, QD
  5. FOLIUMZUUR [Concomitant]
     Active Substance: FOLIC ACID
     Dosage: PER 5 MGR

REACTIONS (1)
  - Thrombosis [Recovering/Resolving]

NARRATIVE: CASE EVENT DATE: 20210322
